FAERS Safety Report 8840859 (Version 2)
Quarter: 2012Q4

REPORT INFORMATION
  Report Type: Report from Study
  Country: DE (occurrence: DE)
  Receive Date: 20121015
  Receipt Date: 20121126
  Transmission Date: 20130627
  Serious: Yes (Other)
  Sender: FDA-Public Use
  Company Number: DE-ROCHE-1144531

PATIENT
  Age: 65 Year
  Sex: Male
  Weight: 69 kg

DRUGS (5)
  1. TOCILIZUMAB [Suspect]
     Indication: RHEUMATOID ARTHRITIS
     Route: 042
     Dates: start: 20100927
  2. TOCILIZUMAB [Suspect]
     Route: 042
     Dates: start: 20120105
  3. TOCILIZUMAB [Suspect]
     Route: 042
     Dates: start: 20120202
  4. TOCILIZUMAB [Suspect]
     Route: 042
     Dates: start: 20120308
  5. TOCILIZUMAB [Suspect]
     Route: 042
     Dates: start: 20120410

REACTIONS (3)
  - Gamma-glutamyltransferase increased [Not Recovered/Not Resolved]
  - Alanine aminotransferase increased [Not Recovered/Not Resolved]
  - Aspartate aminotransferase increased [Not Recovered/Not Resolved]
